FAERS Safety Report 14709064 (Version 1)
Quarter: 2018Q2

REPORT INFORMATION
  Report Type: Spontaneous
  Country: FR (occurrence: FR)
  Receive Date: 20180403
  Receipt Date: 20180403
  Transmission Date: 20180711
  Serious: Yes (Hospitalization)
  Sender: FDA-Public Use
  Company Number: FR-AUROBINDO-AUR-APL-2018-017132

PATIENT
  Age: 29 Year
  Sex: Male
  Weight: 80 kg

DRUGS (5)
  1. NEURONTIN [Suspect]
     Active Substance: GABAPENTIN
     Indication: INTENTIONAL PRODUCT USE ISSUE
     Dosage: ()
     Route: 048
     Dates: start: 20170926, end: 20170927
  2. TERCIAN                            /00759301/ [Suspect]
     Active Substance: CYAMEMAZINE
     Indication: INTENTIONAL PRODUCT USE ISSUE
     Dosage: ()
     Route: 048
     Dates: start: 20170926, end: 20170927
  3. VALIUM [Suspect]
     Active Substance: DIAZEPAM
     Indication: INTENTIONAL PRODUCT USE ISSUE
     Dosage: ()
     Route: 048
     Dates: start: 20170926, end: 20170927
  4. FLUOXETINE [Suspect]
     Active Substance: FLUOXETINE HYDROCHLORIDE
     Indication: PRODUCT USED FOR UNKNOWN INDICATION
     Dosage: UNK
     Route: 048
     Dates: start: 20170926, end: 20170927
  5. SUBUTEX [Suspect]
     Active Substance: BUPRENORPHINE HYDROCHLORIDE
     Indication: INTENTIONAL PRODUCT USE ISSUE
     Dosage: ()
     Route: 048
     Dates: start: 20170928, end: 20170928

REACTIONS (3)
  - Coma [Recovered/Resolved]
  - Somnolence [Recovered/Resolved]
  - Poisoning deliberate [Recovered/Resolved]

NARRATIVE: CASE EVENT DATE: 20170926
